APPROVED DRUG PRODUCT: BACITRACIN ZINC AND POLYMYXIN B SULFATE
Active Ingredient: BACITRACIN ZINC; POLYMYXIN B SULFATE
Strength: 500 UNITS/GM;10,000 UNITS/GM
Dosage Form/Route: OINTMENT;OPHTHALMIC
Application: A064046 | Product #001 | TE Code: AT
Applicant: BAUSCH AND LOMB PHARMACEUTICALS INC
Approved: Jan 26, 1995 | RLD: No | RS: Yes | Type: RX